FAERS Safety Report 14199402 (Version 1)
Quarter: 2017Q4

REPORT INFORMATION
  Report Type: Spontaneous
  Country: CN (occurrence: CN)
  Receive Date: 20171117
  Receipt Date: 20171117
  Transmission Date: 20180321
  Serious: Yes (Hospitalization)
  Sender: FDA-Public Use
  Company Number: CN-ASTELLAS-2017US047331

PATIENT
  Age: 51 Year
  Sex: Male
  Weight: 59 kg

DRUGS (6)
  1. PREDNISONE. [Suspect]
     Active Substance: PREDNISONE
     Indication: LUNG TRANSPLANT
     Dosage: 7.5 MG, AT BEDTIME (QN)
     Route: 065
  2. ESTAZOLAM. [Concomitant]
     Active Substance: ESTAZOLAM
     Indication: POOR QUALITY SLEEP
     Dosage: 1 MG, AT BEDTIME (QN)
     Route: 065
  3. TACROLIMUS. [Suspect]
     Active Substance: TACROLIMUS
     Dosage: 0.5 MG, EVERY OTHER DAY (Q2D)
     Route: 048
  4. BISOPROLOL [Concomitant]
     Active Substance: BISOPROLOL
     Indication: ARRHYTHMIA
     Dosage: 2.5 MG, ONCE DAILY (EVERY MORNING)
     Route: 065
  5. TACROLIMUS. [Suspect]
     Active Substance: TACROLIMUS
     Indication: LUNG TRANSPLANT
     Route: 065
  6. MYCOPHENOLATE MOFETIL. [Suspect]
     Active Substance: MYCOPHENOLATE MOFETIL
     Indication: LUNG TRANSPLANT
     Dosage: 0.25 G, TWICE DAILY
     Route: 065

REACTIONS (10)
  - Bundle branch block right [Unknown]
  - Hiatus hernia [Unknown]
  - Complications of transplanted lung [Recovering/Resolving]
  - Immunosuppressant drug level increased [Unknown]
  - Arrhythmia [Unknown]
  - Pneumonia [Recovering/Resolving]
  - Fungal infection [Unknown]
  - Electrocardiogram T wave abnormal [Unknown]
  - Aspergillus infection [Unknown]
  - Stenotrophomonas infection [Unknown]

NARRATIVE: CASE EVENT DATE: 20170101
